FAERS Safety Report 23135989 (Version 2)
Quarter: 2023Q4

REPORT INFORMATION
  Report Type: Spontaneous
  Country: JP (occurrence: JP)
  Receive Date: 20231102
  Receipt Date: 20231102
  Transmission Date: 20240110
  Serious: Yes (Death, Hospitalization, Other)
  Sender: FDA-Public Use
  Company Number: JP-SA-2023SA333591

PATIENT
  Age: 71 Year
  Sex: Male

DRUGS (4)
  1. INSULIN LISPRO [Suspect]
     Active Substance: INSULIN LISPRO
     Indication: Type 2 diabetes mellitus
     Dosage: 50% INSULIN LISPRO + 50% INTERMEDIATE-ACTING INSULIN LISPRO AT 18 UNITS DAILY
     Route: 058
  2. INSULIN LISPRO [Suspect]
     Active Substance: INSULIN LISPRO
     Indication: Suicide attempt
  3. LANTUS SOLOSTAR [Suspect]
     Active Substance: INSULIN GLARGINE
     Indication: Suicide attempt
     Dosage: UNK
     Route: 058
  4. LANTUS SOLOSTAR [Suspect]
     Active Substance: INSULIN GLARGINE
     Indication: Type 2 diabetes mellitus

REACTIONS (7)
  - Hypoglycaemic encephalopathy [Fatal]
  - Hypoglycaemic coma [Fatal]
  - Hypoglycaemia [Fatal]
  - Altered state of consciousness [Fatal]
  - Condition aggravated [Fatal]
  - Intentional overdose [Fatal]
  - Aspiration [Unknown]
